FAERS Safety Report 9254222 (Version 1)
Quarter: 2013Q2

REPORT INFORMATION
  Report Type: Spontaneous
  Country: CN (occurrence: None)
  Receive Date: 20130419
  Receipt Date: 20130419
  Transmission Date: 20140414
  Serious: Yes (Hospitalization)
  Sender: FDA-Public Use
  Company Number: IPC201304-000132

PATIENT
  Age: 29 Year
  Sex: Female
  Weight: 73 kg

DRUGS (12)
  1. FUROSEMIDE [Suspect]
  2. CALCIUM GLUCONATE [Suspect]
  3. PROPOFOL [Suspect]
     Dosage: 1.6 G/HOUR (4% MGSO4 500ML) STOPPED?
  4. PROPOFOL [Suspect]
     Indication: ANALGESIC THERAPY
     Dosage: 1.6 G/HOUR (4% MGSO4 500ML) STOPPED?
  5. MAGNESIUM SULPHATE [Suspect]
     Dosage: 1.6 G/HOUR (4% MGSO4 500ML SOLUTION, 40 ML/HOUR) WITHOUT A LOADING DOSE, INTRAVENOUS
  6. TRAMADOL (TRAMADOL) (TRAMADOL) [Suspect]
     Indication: SEDATION
  7. TRAMADOL (TRAMADOL) (TRAMADOL) [Suspect]
     Indication: ANALGESIC THERAPY
  8. SUFENTANIL [Concomitant]
  9. REMIFENTANIL (REMIFENTANIL) (REMIFENTANIL) [Concomitant]
  10. PROPOFOL (PROPOFOL) (PROPOFOL) [Concomitant]
  11. ROCURIONIUM (ROCURONIUM) (ROCURONIUM) [Concomitant]
  12. ISOFLURANE (ISOFLURANE) (ISOFLURANE) [Concomitant]

REACTIONS (12)
  - Delayed recovery from anaesthesia [None]
  - Toxicity to various agents [None]
  - Metabolic acidosis [None]
  - Fatigue [None]
  - Incorrect dose administered [None]
  - Wrong technique in drug usage process [None]
  - Somnolence [None]
  - Respiratory acidosis [None]
  - Caesarean section [None]
  - Exposure during pregnancy [None]
  - Hyporeflexia [None]
  - Procedural hypotension [None]
